FAERS Safety Report 20291793 (Version 1)
Quarter: 2022Q1

REPORT INFORMATION
  Report Type: Spontaneous
  Country: DE (occurrence: DE)
  Receive Date: 20220104
  Receipt Date: 20220104
  Transmission Date: 20220424
  Serious: Yes (Life-Threatening, Hospitalization, Other)
  Sender: FDA-Public Use
  Company Number: None

PATIENT
  Age: 27 Year
  Sex: Female
  Weight: 70 kg

DRUGS (1)
  1. CYTOTEC [Suspect]
     Active Substance: MISOPROSTOL
     Indication: Labour induction
     Dosage: 1 DF
     Route: 048
     Dates: start: 20200717, end: 20200717

REACTIONS (17)
  - Cardiovascular disorder [Recovered/Resolved]
  - Haemorrhage [Recovered/Resolved]
  - Presyncope [Unknown]
  - Vaginal haemorrhage [Recovered/Resolved]
  - Urinary bladder rupture [Unknown]
  - Vulvovaginal injury [Recovered/Resolved]
  - Perineal injury [Recovered/Resolved]
  - Hypotension [Unknown]
  - Pelvic pain [Recovered/Resolved]
  - Blood iron decreased [Recovered/Resolved]
  - Uterine tachysystole [Recovered/Resolved]
  - Dizziness [Unknown]
  - Asthenia [Unknown]
  - Weight decreased [Unknown]
  - Suture related complication [Recovered/Resolved]
  - Inflammatory marker increased [Recovered/Resolved]
  - Off label use [Unknown]

NARRATIVE: CASE EVENT DATE: 20200101
